FAERS Safety Report 4374461-0 (Version None)
Quarter: 2004Q2

REPORT INFORMATION
  Report Type: 
  Country: None (occurrence: None)
  Receive Date: 20040608
  Receipt Date: 20040608
  Transmission Date: 20050107
  Serious: Yes (Hospitalization)
  Sender: FDA-Public Use
  Company Number: None

PATIENT
  Age: 29 Year
  Sex: Female
  Weight: 92.9874 kg

DRUGS (2)
  1. ZOSYN [Suspect]
     Indication: ESCHERICHIA INFECTION
     Dosage: 3.375 G IV Q  6 HOURS
     Route: 042
     Dates: start: 20040517, end: 20040606
  2. ZOSYN [Suspect]
     Indication: TUBO-OVARIAN ABSCESS
     Dosage: 3.375 G IV Q  6 HOURS
     Route: 042
     Dates: start: 20040517, end: 20040606

REACTIONS (6)
  - CHILLS [None]
  - DIARRHOEA [None]
  - LEUKOPENIA [None]
  - MALAISE [None]
  - NAUSEA [None]
  - PYREXIA [None]
